FAERS Safety Report 6240465-6 (Version None)
Quarter: 2009Q2

REPORT INFORMATION
  Report Type: 
  Country: None (occurrence: None)
  Receive Date: 20090623
  Receipt Date: 20090309
  Transmission Date: 20091009
  Serious: No
  Sender: FDA-Public Use
  Company Number: US-ASTRAZENECA-2009UW06257

PATIENT
  Age: 83 Year
  Sex: Female
  Weight: 46.3 kg

DRUGS (1)
  1. PULMICORT RESPULES [Suspect]
     Indication: CHRONIC OBSTRUCTIVE PULMONARY DISEASE
     Dosage: 0.5 MG, BID
     Route: 055

REACTIONS (1)
  - DYSPNOEA [None]
